FAERS Safety Report 20003342 (Version 1)
Quarter: 2021Q4

REPORT INFORMATION
  Report Type: Report from Study
  Country: None (occurrence: US)
  Receive Date: 20211028
  Receipt Date: 20211028
  Transmission Date: 20220303
  Serious: Yes (Hospitalization)
  Sender: FDA-Public Use
  Company Number: US-ABBVIE-21K-163-4137803-00

PATIENT
  Sex: Male

DRUGS (2)
  1. VENCLEXTA [Interacting]
     Active Substance: VENETOCLAX
     Indication: Product used for unknown indication
     Route: 048
     Dates: end: 2021
  2. DILTIAZEM [Interacting]
     Active Substance: DILTIAZEM
     Indication: Product used for unknown indication
     Route: 065

REACTIONS (2)
  - COVID-19 [Recovering/Resolving]
  - Drug interaction [Unknown]

NARRATIVE: CASE EVENT DATE: 20210101
